FAERS Safety Report 8008382-9 (Version None)
Quarter: 2011Q4

REPORT INFORMATION
  Report Type: 
  Country: None (occurrence: None)
  Receive Date: 20111227
  Receipt Date: 20111215
  Transmission Date: 20120403
  Serious: Yes (Life-Threatening, Other)
  Sender: FDA-Public Use
  Company Number: JP-ROCHE-1014070

PATIENT
  Sex: Male
  Weight: 60 kg

DRUGS (27)
  1. OXALIPLATIN [Concomitant]
     Route: 041
     Dates: start: 20110217, end: 20110519
  2. FLUOROURACIL [Concomitant]
     Route: 041
     Dates: start: 20110823, end: 20110921
  3. ALOXI [Concomitant]
     Indication: PROPHYLAXIS
     Route: 042
     Dates: start: 20110726, end: 20111101
  4. NOVAMIN [Concomitant]
     Route: 048
     Dates: start: 20110823, end: 20110920
  5. AVASTIN [Suspect]
     Route: 041
     Dates: start: 20110630, end: 20111101
  6. CAMPTOSAR [Concomitant]
     Indication: COLORECTAL CANCER METASTATIC
     Route: 041
     Dates: start: 20110726, end: 20110906
  7. LEVOLEUCOVORIN CALCIUM [Concomitant]
     Indication: COLORECTAL CANCER METASTATIC
     Route: 041
     Dates: start: 20110726, end: 20111101
  8. DECADRON [Concomitant]
     Indication: PROPHYLAXIS
     Route: 042
     Dates: start: 20100803, end: 20111101
  9. MOTILIUM [Concomitant]
     Route: 048
     Dates: start: 20111025, end: 20111114
  10. AVASTIN [Suspect]
     Indication: COLORECTAL CANCER METASTATIC
     Route: 041
     Dates: start: 20100803, end: 20110519
  11. XELODA [Suspect]
     Indication: COLORECTAL CANCER METASTATIC
     Dosage: IT IS ONE ADMINISTERING WEEKLY HOLIDAY MEDICINE FOR TWO WEEKS.
     Route: 048
     Dates: start: 20100803, end: 20100913
  12. PYDOXAL [Concomitant]
     Indication: PROPHYLAXIS
     Route: 048
     Dates: start: 20100803, end: 20110128
  13. MOTILIUM [Concomitant]
     Indication: PROPHYLAXIS OF NAUSEA AND VOMITING
     Route: 048
     Dates: start: 20100803, end: 20101110
  14. TRAMADOL HYDROCHLORIDE [Concomitant]
     Indication: CANCER PAIN
     Route: 048
     Dates: start: 20110816, end: 20110822
  15. XELODA [Suspect]
     Dosage: IT IS ONE ADMINISTERING WEEKLY HOLIDAY MEDICINE FOR TWO WEEKS.
     Route: 048
     Dates: start: 20100914, end: 20101025
  16. FLUOROURACIL [Concomitant]
     Indication: COLORECTAL CANCER METASTATIC
     Route: 041
     Dates: start: 20110726, end: 20110728
  17. TRAMADOL HYDROCHLORIDE [Concomitant]
     Route: 048
     Dates: start: 20110823, end: 20110920
  18. TRAMADOL HYDROCHLORIDE [Concomitant]
     Route: 048
     Dates: start: 20111025, end: 20111114
  19. XELODA [Suspect]
     Dosage: IT IS ONE ADMINISTERING WEEKLY HOLIDAY MEDICINE FOR TWO WEEKS.
     Route: 048
     Dates: start: 20101026, end: 20110118
  20. CAMPTOSAR [Concomitant]
     Route: 041
     Dates: start: 20110920, end: 20111101
  21. MUCOSTA [Concomitant]
     Indication: CANCER PAIN
     Route: 048
     Dates: start: 20110609, end: 20111102
  22. XELODA [Suspect]
     Dosage: IT IS ONE ADMINISTERING WEEKLY HOLIDAY MEDICINE FOR TWO WEEKS.
     Route: 048
     Dates: start: 20110217, end: 20110519
  23. FLUOROURACIL [Concomitant]
     Route: 041
     Dates: start: 20111018, end: 20111101
  24. NOVAMIN [Concomitant]
     Indication: PROPHYLAXIS OF NAUSEA AND VOMITING
     Route: 048
     Dates: start: 20110816, end: 20110822
  25. OXALIPLATIN [Concomitant]
     Indication: COLORECTAL CANCER METASTATIC
     Route: 041
     Dates: start: 20100803, end: 20110104
  26. KYTRIL [Concomitant]
     Indication: PROPHYLAXIS
     Route: 042
     Dates: start: 20100803, end: 20110519
  27. LOXONIN [Concomitant]
     Indication: CANCER PAIN
     Route: 048
     Dates: start: 20110609, end: 20111102

REACTIONS (9)
  - PORTAL VEIN PRESSURE INCREASED [None]
  - PLATELET COUNT DECREASED [None]
  - DEVICE RELATED INFECTION [None]
  - ERECTILE DYSFUNCTION [None]
  - CONSTIPATION [None]
  - CATHETER SITE PAIN [None]
  - INSOMNIA [None]
  - GASTRIC VARICES HAEMORRHAGE [None]
  - DYSCHEZIA [None]
